FAERS Safety Report 8979615 (Version 2)
Quarter: 2014Q3

REPORT INFORMATION
  Report Type: Spontaneous
  Country: US (occurrence: US)
  Receive Date: 20121221
  Receipt Date: 20140923
  Transmission Date: 20150326
  Serious: Yes (Hospitalization, Other)
  Sender: FDA-Public Use
  Company Number: US-ROCHE-1143676

PATIENT
  Sex: Male
  Weight: 85.81 kg

DRUGS (1)
  1. ACCUTANE [Suspect]
     Active Substance: ISOTRETINOIN
     Indication: PRODUCT USED FOR UNKNOWN INDICATION
     Route: 065
     Dates: start: 1984, end: 1985

REACTIONS (6)
  - Inflammatory bowel disease [Unknown]
  - Colitis ulcerative [Unknown]
  - Small intestinal obstruction [Unknown]
  - Fistula [Unknown]
  - Crohn^s disease [Unknown]
  - Depression [Unknown]

NARRATIVE: CASE EVENT DATE: 1990
